FAERS Safety Report 5963932-9 (Version None)
Quarter: 2008Q4

REPORT INFORMATION
  Report Type: 
  Country: None (occurrence: None)
  Receive Date: 20081121
  Receipt Date: 20081121
  Transmission Date: 20090506
  Serious: Yes (Other)
  Sender: FDA-Public Use
  Company Number: None

PATIENT
  Age: 56 Year
  Sex: Female
  Weight: 96.6162 kg

DRUGS (3)
  1. BUPROPRION XL [Suspect]
     Indication: MAJOR DEPRESSION
     Dosage: XL 150MG X3
  2. BUPROPRION XL [Suspect]
     Indication: OBSESSIVE-COMPULSIVE DISORDER
     Dosage: XL 150MG X3
  3. BUPROPRION XL [Suspect]
     Indication: TRICHOTILLOMANIA
     Dosage: XL 150MG X3

REACTIONS (3)
  - CONDITION AGGRAVATED [None]
  - DEPRESSED MOOD [None]
  - THERAPEUTIC RESPONSE UNEXPECTED WITH DRUG SUBSTITUTION [None]
